FAERS Safety Report 20511418 (Version 1)
Quarter: 2022Q1

REPORT INFORMATION
  Report Type: Spontaneous
  Country: JP (occurrence: JP)
  Receive Date: 20220224
  Receipt Date: 20220224
  Transmission Date: 20220423
  Serious: Yes (Hospitalization)
  Sender: FDA-Public Use
  Company Number: JP-CHUGAI-2022004864

PATIENT
  Age: 91 Year
  Sex: Female

DRUGS (1)
  1. ACTEMRA [Suspect]
     Active Substance: TOCILIZUMAB
     Indication: Rheumatoid arthritis
     Dosage: UNK, ONCE/4WEEKS
     Route: 041

REACTIONS (3)
  - Aortic valve stenosis [Unknown]
  - Cerebral infarction [Unknown]
  - Cardiac tamponade [Unknown]
